FAERS Safety Report 5069742-1 (Version None)
Quarter: 2006Q3

REPORT INFORMATION
  Report Type: 
  Country: None (occurrence: None)
  Receive Date: 20060803
  Receipt Date: 20050517
  Transmission Date: 20061208
  Serious: Yes (Hospitalization)
  Sender: FDA-Public Use
  Company Number: US-MERCK-0505USA02142

PATIENT
  Age: 55 Year
  Sex: Female
  Weight: 43 kg

DRUGS (9)
  1. ZOCOR [Suspect]
     Route: 048
  2. DURAGESIC-100 [Concomitant]
     Route: 061
     Dates: end: 20040805
  3. NEURONTIN [Concomitant]
     Route: 065
  4. METFORMIN [Concomitant]
     Route: 065
  5. TRIAMTERENE [Concomitant]
     Route: 065
  6. DIOVAN [Concomitant]
     Route: 065
  7. HYDROXYCHLOROQUINE SULFATE [Concomitant]
     Route: 065
  8. STARLIX [Concomitant]
     Route: 065
  9. PERCOCET [Concomitant]
     Indication: PAIN
     Route: 065

REACTIONS (23)
  - ACUTE MYOCARDIAL INFARCTION [None]
  - ADVERSE EVENT [None]
  - ANAEMIA [None]
  - ANXIETY [None]
  - BLOOD POTASSIUM INCREASED [None]
  - CORONARY ARTERY DISEASE [None]
  - DEAFNESS UNILATERAL [None]
  - DECUBITUS ULCER [None]
  - DEPRESSED LEVEL OF CONSCIOUSNESS [None]
  - DYSPNOEA [None]
  - FLUID RETENTION [None]
  - HEPATIC FAILURE [None]
  - HYPERGLYCAEMIA [None]
  - ISCHAEMIC HEPATITIS [None]
  - METABOLIC ENCEPHALOPATHY [None]
  - NIGHTMARE [None]
  - PAIN [None]
  - PNEUMONIA [None]
  - RENAL FAILURE ACUTE [None]
  - RHABDOMYOLYSIS [None]
  - SYNCOPE [None]
  - TENDON INJURY [None]
  - URINARY TRACT INFECTION [None]
